FAERS Safety Report 6272214-X (Version None)
Quarter: 2009Q3

REPORT INFORMATION
  Report Type: 
  Country: None (occurrence: None)
  Receive Date: 20090717
  Receipt Date: 20090710
  Transmission Date: 20100115
  Serious: Yes (Hospitalization, Other)
  Sender: FDA-Public Use
  Company Number: US-ELI_LILLY_AND_COMPANY-US200905003854

PATIENT
  Sex: Female

DRUGS (4)
  1. FORTEO [Suspect]
     Indication: SENILE OSTEOPOROSIS
     Dosage: UNK, UNK
     Dates: start: 20090323
  2. PROZAC [Concomitant]
  3. CALCIUM [Concomitant]
  4. MULTI-VITAMIN [Concomitant]

REACTIONS (1)
  - VULVAL CANCER STAGE I [None]
